FAERS Safety Report 7091410-5 (Version None)
Quarter: 2010Q4

REPORT INFORMATION
  Report Type: 
  Country: None (occurrence: None)
  Receive Date: 20101109
  Receipt Date: 20101105
  Transmission Date: 20110411
  Serious: Yes (Other)
  Sender: FDA-Public Use
  Company Number: B0674797A

PATIENT
  Sex: Female

DRUGS (3)
  1. OMACOR [Suspect]
     Indication: BLOOD CHOLESTEROL INCREASED
     Dosage: 1000MG PER DAY
     Route: 048
     Dates: start: 20100501, end: 20100901
  2. SALMON OIL [Concomitant]
  3. MELATONIN [Concomitant]
     Dates: start: 20101017

REACTIONS (4)
  - ARRHYTHMIA [None]
  - GASTROINTESTINAL PAIN [None]
  - OFF LABEL USE [None]
  - VERTIGO [None]
